FAERS Safety Report 23493165 (Version 1)
Quarter: 2024Q1

REPORT INFORMATION
  Report Type: Spontaneous
  Country: AT (occurrence: AT)
  Receive Date: 20240207
  Receipt Date: 20240207
  Transmission Date: 20240410
  Serious: Yes (Hospitalization)
  Sender: FDA-Public Use
  Company Number: AT-BoehringerIngelheim-2024-BI-006882

PATIENT
  Age: 80 Year
  Sex: Male

DRUGS (3)
  1. JARDIANCE [Suspect]
     Active Substance: EMPAGLIFLOZIN
     Indication: Diabetes mellitus
  2. JARDIANCE [Suspect]
     Active Substance: EMPAGLIFLOZIN
     Indication: Cardiac failure
  3. Macromar [Concomitant]
     Indication: Product used for unknown indication
     Dosage: PATIENT HAS BEEN TAKING MACROMAR FOR YEARS ( 1X MONTHLY CHECK-UP BY THE FAMILY DOCTOR, OTHERWISE SEL

REACTIONS (2)
  - Blindness unilateral [Unknown]
  - Haemorrhage [Unknown]
